FAERS Safety Report 12508608 (Version 2)
Quarter: 2017Q3

REPORT INFORMATION
  Report Type: Spontaneous
  Country: CA (occurrence: CA)
  Receive Date: 20160629
  Receipt Date: 20170927
  Transmission Date: 20171127
  Serious: Yes (Hospitalization, Other)
  Sender: FDA-Public Use
  Company Number: CA-APOTEX-2016AP009216

PATIENT
  Age: 42 Year
  Sex: Female

DRUGS (2)
  1. APO-FLUCONAZOLE-150 [Suspect]
     Active Substance: FLUCONAZOLE
     Indication: ECZEMA
     Dosage: 1 DF, UNK
     Route: 048
  2. APO-FLUCONAZOLE-150 [Suspect]
     Active Substance: FLUCONAZOLE
     Indication: SUPERINFECTION

REACTIONS (1)
  - Kounis syndrome [Recovered/Resolved]
